FAERS Safety Report 17298151 (Version 1)
Quarter: 2020Q1

REPORT INFORMATION
  Report Type: Spontaneous
  Country: US (occurrence: US)
  Receive Date: 20200122
  Receipt Date: 20200122
  Transmission Date: 20200409
  Serious: No
  Sender: FDA-Public Use
  Company Number: US-LUPIN PHARMACEUTICALS INC.-2020-00142

PATIENT
  Age: 67 Year
  Sex: Male
  Weight: 66 kg

DRUGS (2)
  1. CEFUROXIME AXETIL TABLETS USP, 500 MG [Suspect]
     Active Substance: CEFUROXIME AXETIL
     Indication: SINUSITIS
  2. CEFUROXIME AXETIL TABLETS USP, 500 MG [Suspect]
     Active Substance: CEFUROXIME AXETIL
     Indication: LABYRINTHITIS
     Dosage: 500 MILLIGRAM, BID (A ROUND OF 500MG TABLETS ABOUT EVERY 3 MONTHS)
     Route: 048
     Dates: start: 201501

REACTIONS (3)
  - Product taste abnormal [Unknown]
  - Product coating issue [Unknown]
  - Off label use [Unknown]

NARRATIVE: CASE EVENT DATE: 201501
